FAERS Safety Report 9302596 (Version 1)
Quarter: 2013Q2

REPORT INFORMATION
  Report Type: Spontaneous
  Country: GB (occurrence: None)
  Receive Date: 20130517
  Receipt Date: 20130517
  Transmission Date: 20140414
  Serious: Yes (Disabling, Other)
  Sender: FDA-Public Use
  Company Number: TUK2013A00130

PATIENT
  Age: 54 Year
  Sex: Male

DRUGS (2)
  1. PIOGLITAZONE HYDROCHLORIDE [Suspect]
     Indication: PRODUCT USED FOR UNKNOWN INDICATION
  2. ATENOLOL (ATENOLOL) [Suspect]
     Indication: PRODUCT USED FOR UNKNOWN INDICATION
     Route: 048
     Dates: start: 2003

REACTIONS (8)
  - Hand-arm vibration syndrome [None]
  - Condition aggravated [None]
  - Anorgasmia [None]
  - Paraesthesia [None]
  - Loss of libido [None]
  - Blood glucose abnormal [None]
  - Erectile dysfunction [None]
  - Lethargy [None]
